FAERS Safety Report 6046269-1 (Version None)
Quarter: 2009Q1

REPORT INFORMATION
  Report Type: 
  Country: None (occurrence: None)
  Receive Date: 20090121
  Receipt Date: 20090121
  Transmission Date: 20090719
  Serious: Yes (Hospitalization)
  Sender: FDA-Public Use
  Company Number: None

PATIENT
  Age: 66 Year
  Sex: Male
  Weight: 60.3284 kg

DRUGS (2)
  1. GABAPENTIN [Suspect]
     Indication: POLYNEUROPATHY
     Dosage: 1 CAPSULE @ BEDTIME- PO
     Route: 048
  2. NEURONTIN [Concomitant]

REACTIONS (3)
  - DYSKINESIA [None]
  - PRODUCT QUALITY ISSUE [None]
  - TREMOR [None]
